FAERS Safety Report 25967893 (Version 1)
Quarter: 2025Q4

REPORT INFORMATION
  Report Type: Spontaneous
  Country: EU (occurrence: EU)
  Receive Date: 20251028
  Receipt Date: 20251028
  Transmission Date: 20260117
  Serious: Yes (Hospitalization, Other)
  Sender: CHATTEM
  Company Number: EU-OPELLA-2025OHG031096

PATIENT
  Age: 88 Year
  Sex: Male

DRUGS (2)
  1. LEVOCETIRIZINE [Suspect]
     Active Substance: LEVOCETIRIZINE
     Indication: Hypersensitivity
     Route: 065
     Dates: start: 20251003, end: 202510
  2. LEVOCETIRIZINE [Suspect]
     Active Substance: LEVOCETIRIZINE
     Route: 065

REACTIONS (5)
  - Renal failure [Recovering/Resolving]
  - Bacteraemia [Recovering/Resolving]
  - Pulmonary oedema [Recovering/Resolving]
  - Weight increased [Recovering/Resolving]
  - Dysuria [Recovered/Resolved]

NARRATIVE: CASE EVENT DATE: 20251007
